FAERS Safety Report 8774378 (Version 1)
Quarter: 2012Q4

REPORT INFORMATION
  Report Type: Report from Study
  Country: JP (occurrence: JP)
  Receive Date: 20120907
  Receipt Date: 20120907
  Transmission Date: 20130627
  Serious: Yes (Death, Other)
  Sender: FDA-Public Use
  Company Number: JP-CELGENEUS-087-50794-12072698

PATIENT
  Age: 81 Year
  Sex: Female

DRUGS (1)
  1. VIDAZA [Suspect]
     Indication: DRUG USE FOR UNKNOWN INDICATION
     Dosage: 75 milligram/sq. meter
     Route: 041
     Dates: start: 20120627, end: 20120703

REACTIONS (1)
  - Pneumonia [Fatal]
